FAERS Safety Report 25360869 (Version 2)
Quarter: 2025Q2

REPORT INFORMATION
  Report Type: Spontaneous
  Country: US (occurrence: US)
  Receive Date: 20250527
  Receipt Date: 20250620
  Transmission Date: 20250717
  Serious: Yes (Hospitalization, Other)
  Sender: SANOFI AVENTIS
  Company Number: US-SA-2025SA148602

PATIENT
  Age: 68 Year
  Sex: Female

DRUGS (2)
  1. DUPIXENT [Suspect]
     Active Substance: DUPILUMAB
     Indication: Dermatitis atopic
     Route: 058
     Dates: start: 20250214, end: 20250214
  2. DUPIXENT [Suspect]
     Active Substance: DUPILUMAB
     Dosage: 300 MG, QOW
     Route: 058
     Dates: start: 20250228

REACTIONS (15)
  - Skin necrosis [Unknown]
  - Ovarian neoplasm [Unknown]
  - Pain in extremity [Unknown]
  - Hypoaesthesia [Unknown]
  - Injection site hypoaesthesia [Unknown]
  - Injection site discolouration [Unknown]
  - Localised infection [Unknown]
  - Skin lesion [Unknown]
  - Skin tightness [Unknown]
  - Haemorrhage [Unknown]
  - Rash [Unknown]
  - Debridement [Unknown]
  - Injection site bruising [Unknown]
  - Injection site pain [Unknown]
  - Product use in unapproved indication [Unknown]

NARRATIVE: CASE EVENT DATE: 20250101
